FAERS Safety Report 21583386 (Version 1)
Quarter: 2022Q4

REPORT INFORMATION
  Report Type: Spontaneous
  Country: CA (occurrence: CA)
  Receive Date: 20221111
  Receipt Date: 20221111
  Transmission Date: 20230113
  Serious: Yes (Other)
  Sender: FDA-Public Use
  Company Number: CA-ASPEN-GLO2020CA006993

PATIENT
  Age: 74 Year
  Sex: Female
  Weight: 82 kg

DRUGS (17)
  1. LEFLUNOMIDE [Suspect]
     Active Substance: LEFLUNOMIDE
     Indication: Rheumatoid arthritis
     Dosage: UNK, (FILM-COATED TABLET)
     Route: 065
  2. LEFLUNOMIDE [Suspect]
     Active Substance: LEFLUNOMIDE
     Dosage: UNK
     Route: 065
  3. LEFLUNOMIDE [Suspect]
     Active Substance: LEFLUNOMIDE
     Dosage: 20 MG, QD
     Route: 048
  4. METHOTREXATE [Suspect]
     Active Substance: METHOTREXATE
     Indication: Product used for unknown indication
     Dosage: UNK
     Route: 065
  5. METHOTREXATE [Suspect]
     Active Substance: METHOTREXATE
     Dosage: 20 MG, QD
     Route: 048
  6. RITUXIMAB [Suspect]
     Active Substance: RITUXIMAB
     Indication: Rheumatoid arthritis
     Dosage: UNK
     Route: 042
  7. AZATHIOPRINE [Suspect]
     Active Substance: AZATHIOPRINE
     Indication: Product used for unknown indication
     Dosage: UNK
     Route: 065
  8. AZATHIOPRINE [Suspect]
     Active Substance: AZATHIOPRINE
     Indication: Rheumatoid arthritis
     Dosage: UNK
     Route: 048
  9. ANAKINRA [Suspect]
     Active Substance: ANAKINRA
     Indication: Rheumatoid arthritis
     Dosage: UNK
     Route: 058
  10. CIMZIA [Suspect]
     Active Substance: CERTOLIZUMAB PEGOL
     Indication: Product used for unknown indication
     Dosage: UNK
     Route: 065
  11. ENBREL [Suspect]
     Active Substance: ETANERCEPT
     Indication: Product used for unknown indication
     Dosage: UNK UNK, QW
     Route: 058
  12. GOLD [Suspect]
     Active Substance: GOLD
     Indication: Product used for unknown indication
     Dosage: UNK
     Route: 065
  13. HYDROXYCHLOROQUINE SULFATE [Suspect]
     Active Substance: HYDROXYCHLOROQUINE SULFATE
     Indication: Product used for unknown indication
     Dosage: UNK
     Route: 048
  14. KINERET [Suspect]
     Active Substance: ANAKINRA
     Indication: Product used for unknown indication
     Dosage: 100 MG
     Route: 065
  15. PREDNISONE [Suspect]
     Active Substance: PREDNISONE
     Indication: Product used for unknown indication
     Dosage: UNK
     Route: 065
  16. REMICADE [Suspect]
     Active Substance: INFLIXIMAB
     Indication: Rheumatoid arthritis
     Dosage: UNK
     Route: 042
  17. SULFASALAZINE [Suspect]
     Active Substance: SULFASALAZINE
     Indication: Rheumatoid arthritis
     Dosage: UNK
     Route: 065

REACTIONS (3)
  - Rheumatoid arthritis [Unknown]
  - Treatment failure [Unknown]
  - Drug ineffective [Unknown]
